FAERS Safety Report 17428408 (Version 1)
Quarter: 2020Q1

REPORT INFORMATION
  Report Type: Spontaneous
  Country: TR (occurrence: TR)
  Receive Date: 20200217
  Receipt Date: 20200217
  Transmission Date: 20200409
  Serious: Yes (Other)
  Sender: FDA-Public Use
  Company Number: TR-BAYER-2020-024253

PATIENT
  Sex: Female

DRUGS (1)
  1. QLAIRISTA [Suspect]
     Active Substance: DIENOGEST\ESTRADIOL VALERATE
     Indication: MENORRHAGIA
     Dosage: UNK
     Route: 048
     Dates: start: 20190601, end: 20200127

REACTIONS (1)
  - Blindness transient [Recovered/Resolved]

NARRATIVE: CASE EVENT DATE: 20200124
